FAERS Safety Report 8371613-X (Version None)
Quarter: 2012Q2

REPORT INFORMATION
  Report Type: 
  Country: None (occurrence: None)
  Receive Date: 20120518
  Receipt Date: 20120504
  Transmission Date: 20120825
  Serious: Yes (Death)
  Sender: FDA-Public Use
  Company Number: GB-WATSON-2012-08503

PATIENT
  Sex: Male

DRUGS (1)
  1. MORPHINE [Suspect]
     Indication: PRODUCT USED FOR UNKNOWN INDICATION
     Dosage: 850 MG, SINGLE
     Route: 065
     Dates: start: 20101001

REACTIONS (3)
  - TRAUMATIC LUNG INJURY [None]
  - CEREBRAL HAEMORRHAGE [None]
  - ACCIDENTAL OVERDOSE [None]
